FAERS Safety Report 18308162 (Version 1)
Quarter: 2020Q3

REPORT INFORMATION
  Report Type: Spontaneous
  Country: FR (occurrence: FR)
  Receive Date: 20200924
  Receipt Date: 20200924
  Transmission Date: 20201103
  Serious: Yes (Death, Hospitalization)
  Sender: FDA-Public Use
  Company Number: FR-MYLANLABS-2020M1081083

PATIENT
  Age: 70 Year
  Sex: Male

DRUGS (1)
  1. OLANZAPINE. [Suspect]
     Active Substance: OLANZAPINE
     Indication: PSYCHOTIC DISORDER
     Route: 065

REACTIONS (10)
  - Constipation [Fatal]
  - Abdominal distension [Fatal]
  - Hyperlactacidaemia [Fatal]
  - Collateral circulation [Fatal]
  - Hypotension [Fatal]
  - Anuria [Fatal]
  - Faecaloma [Fatal]
  - Abdominal pain [Fatal]
  - Acute kidney injury [Fatal]
  - Multiple organ dysfunction syndrome [Fatal]
